FAERS Safety Report 6907170-1 (Version None)
Quarter: 2010Q3

REPORT INFORMATION
  Report Type: 
  Country: None (occurrence: None)
  Receive Date: 20100804
  Receipt Date: 20090731
  Transmission Date: 20110219
  Serious: Yes (Other)
  Sender: FDA-Public Use
  Company Number: US-PFIZER INC-2009228017

PATIENT
  Sex: Female
  Weight: 71 kg

DRUGS (2)
  1. SELZENTRY [Suspect]
     Dosage: 150 MG, 2X/DAY
     Dates: start: 20060924
  2. ALL OTHER THERAPEUTIC PRODUCTS [Concomitant]
     Dosage: UNK

REACTIONS (6)
  - ALANINE AMINOTRANSFERASE INCREASED [None]
  - ASPARTATE AMINOTRANSFERASE INCREASED [None]
  - BLOOD ALKALINE PHOSPHATASE INCREASED [None]
  - BLOOD BILIRUBIN INCREASED [None]
  - NAUSEA [None]
  - ORTHOSTATIC HYPOTENSION [None]
